FAERS Safety Report 6569638-X (Version None)
Quarter: 2010Q1

REPORT INFORMATION
  Report Type: 
  Country: None (occurrence: None)
  Receive Date: 20100203
  Receipt Date: 20100203
  Transmission Date: 20100710
  Serious: Yes (Other)
  Sender: FDA-Public Use
  Company Number: None

PATIENT
  Sex: Female
  Weight: 58.9676 kg

DRUGS (2)
  1. TYLENOL (CAPLET) [Suspect]
     Indication: HEADACHE
     Dosage: 2 GELS 3 TIMES DAY 3 TIMES DAILY
     Dates: start: 20091226, end: 20100116
  2. TYLENOL (CAPLET) [Suspect]
     Indication: PAIN
     Dosage: 2 GELS 3 TIMES DAY 3 TIMES DAILY
     Dates: start: 20091226, end: 20100116

REACTIONS (4)
  - DIARRHOEA [None]
  - INFLUENZA LIKE ILLNESS [None]
  - PRODUCT QUALITY ISSUE [None]
  - VOMITING [None]
